FAERS Safety Report 8678964 (Version 3)
Quarter: 2012Q4

REPORT INFORMATION
  Report Type: 
  Country: DE (occurrence: DE)
  Receive Date: 20120724
  Receipt Date: 20120913
  Transmission Date: 20130627
  Serious: Yes (Hospitalization)
  Sender: FDA-Public Use
  Company Number: DE-AMGEN-DEUSP2012045175

PATIENT
  Sex: Female

DRUGS (12)
  1. PEGFILGRASTIM [Suspect]
     Indication: B-CELL LYMPHOMA
     Dosage: 6 mg, UNK
     Route: 058
     Dates: start: 20120708, end: 20120708
  2. RITUXIMAB [Suspect]
     Indication: B-CELL LYMPHOMA
     Dosage: 513.75 mg, qd
     Route: 042
     Dates: start: 20120704, end: 20120704
  3. CYCLOPHOSPHAMIDE [Suspect]
     Indication: B-CELL LYMPHOMA
     Dosage: 1027.5 mg, UNK
     Route: 042
     Dates: start: 20120704, end: 20120704
  4. DOXORUBICINE [Suspect]
     Indication: B-CELL LYMPHOMA
     Dosage: 66.5 mg, qd
     Route: 042
     Dates: start: 20120704, end: 20120704
  5. VINCRISTINE [Suspect]
     Indication: B-CELL LYMPHOMA
     Dosage: 2.76 mg, UNK
     Route: 042
     Dates: start: 20120704, end: 20120704
  6. PREDNISONE [Suspect]
     Indication: B-CELL LYMPHOMA
     Dosage: 100 mg, UNK
     Route: 048
     Dates: start: 20120703, end: 20120708
  7. BISOPROLOL [Concomitant]
     Indication: HYPERTENSION
     Dosage: 5 mg, qd
     Route: 048
     Dates: start: 20120618
  8. LOSARTAN POTASSIUM [Concomitant]
     Indication: HYPERTENSION
     Dosage: 25 mg, qd
     Route: 048
     Dates: start: 20120618
  9. ALLOPURINOL [Concomitant]
     Indication: PROPHYLAXIS
     Dosage: 150 mg, qd
     Route: 048
     Dates: start: 20120618
  10. METOCLOPRAMIDE [Concomitant]
     Indication: NAUSEA
     Dosage: 60 g, UNK
     Route: 048
  11. AMLODIPIN                          /00972401/ [Concomitant]
     Indication: HYPERTENSION
     Dosage: 5 mg, UNK
     Route: 048
  12. PANTOPRAZOLE SODIUM [Concomitant]
     Indication: PROPHYLAXIS
     Dosage: 80 mg, UNK
     Dates: start: 20120717

REACTIONS (3)
  - Nausea [Recovered/Resolved]
  - Vomiting [Recovered/Resolved]
  - Hyponatraemia [Recovered/Resolved]
